FAERS Safety Report 20659888 (Version 1)
Quarter: 2022Q1

REPORT INFORMATION
  Report Type: Spontaneous
  Country: US (occurrence: None)
  Receive Date: 20220329
  Receipt Date: 20220329
  Transmission Date: 20220423
  Serious: No
  Sender: FDA-Public Use
  Company Number: None

PATIENT
  Age: 32 Year
  Sex: Female
  Weight: 52.16 kg

DRUGS (1)
  1. CIPRO [Suspect]
     Active Substance: CIPROFLOXACIN HYDROCHLORIDE
     Dosage: 1 TAB PO   BID  MONTH?
     Route: 048
     Dates: start: 20211011, end: 20211015

REACTIONS (2)
  - Tendonitis [None]
  - Gait inability [None]

NARRATIVE: CASE EVENT DATE: 20211017
